FAERS Safety Report 19426331 (Version 8)
Quarter: 2021Q4

REPORT INFORMATION
  Report Type: Report from Study
  Country: SG (occurrence: SG)
  Receive Date: 20210616
  Receipt Date: 20211108
  Transmission Date: 20220303
  Serious: Yes (Other)
  Sender: FDA-Public Use
  Company Number: NVSC2021SG133205

PATIENT
  Age: 60 Year
  Sex: Male
  Weight: 54.2 kg

DRUGS (5)
  1. TRAMETINIB [Suspect]
     Active Substance: TRAMETINIB
     Indication: Pancreatic carcinoma metastatic
     Dosage: 2 MG, QD
     Route: 048
     Dates: start: 20210517, end: 20210712
  2. RUXOLITINIB [Suspect]
     Active Substance: RUXOLITINIB
     Indication: Pancreatic carcinoma metastatic
     Dosage: 10 MG, BID
     Route: 048
     Dates: start: 20210517, end: 20210712
  3. AMLODIPINE [Concomitant]
     Active Substance: AMLODIPINE BESYLATE
     Indication: Product used for unknown indication
     Dosage: 5 MG
     Route: 065
     Dates: start: 2015, end: 20210524
  4. NIFEDIPINE [Concomitant]
     Active Substance: NIFEDIPINE
     Indication: Product used for unknown indication
     Dosage: 60 MG
     Route: 065
     Dates: start: 20210525, end: 20210530
  5. NIFEDIPINE [Concomitant]
     Active Substance: NIFEDIPINE
     Dosage: UNK
     Route: 065
     Dates: start: 20210531

REACTIONS (1)
  - Detachment of retinal pigment epithelium [Recovered/Resolved]

NARRATIVE: CASE EVENT DATE: 20210611
